FAERS Safety Report 4401341-4 (Version None)
Quarter: 2004Q3

REPORT INFORMATION
  Report Type: 
  Country: None (occurrence: None)
  Receive Date: 20040907
  Receipt Date: 20040317
  Transmission Date: 20050211
  Serious: No
  Sender: FDA-Public Use
  Company Number: US-BRISTOL-MYERS SQUIBB COMPANY-12536447

PATIENT
  Age: 82 Year
  Sex: Male
  Weight: 83 kg

DRUGS (11)
  1. COUMADIN [Suspect]
     Indication: ATRIAL FIBRILLATION
     Dosage: ON 17-DEC-03 STARTED ON 7.5 MG ALTERNATING WITH 5MG DAILY
     Route: 048
     Dates: start: 20031217
  2. MICRO-K [Concomitant]
  3. ADVAIR DISKUS 100/50 [Concomitant]
  4. DIGOXIN [Concomitant]
  5. LASIX [Concomitant]
  6. BUMEX [Concomitant]
  7. ALBUTEROL [Concomitant]
  8. CLARINEX [Concomitant]
  9. OXYGEN [Concomitant]
     Dosage: GIVEN AT NIGHT
  10. XANAX [Concomitant]
  11. IPRATROPIUM BROMIDE [Concomitant]
     Dosage: NEBULIZER
     Route: 055

REACTIONS (2)
  - INTERNATIONAL NORMALISED RATIO DECREASED [None]
  - THERAPEUTIC RESPONSE DECREASED [None]
